FAERS Safety Report 4477418-4 (Version None)
Quarter: 2004Q4

REPORT INFORMATION
  Report Type: 
  Country: None (occurrence: None)
  Receive Date: 20041013
  Receipt Date: 20040927
  Transmission Date: 20050328
  Serious: Yes (Hospitalization)
  Sender: FDA-Public Use
  Company Number: M2004-1460

PATIENT
  Age: 54 Year
  Sex: Female

DRUGS (8)
  1. METRONIDAZOLE, UNK,  UNKNOWN MANUFACTURER [Suspect]
     Indication: PROPHYLAXIS
  2. ISOFLURANE, UNK, UNKNOWN MANUFACTURER [Suspect]
     Indication: ANAESTHESIA
  3. PROPOFOL [Concomitant]
  4. BUPIVACAINE EPIDURAL [Concomitant]
  5. DIAMORPHINE [Concomitant]
  6. GLYCOPYRRONIUM BROMIDE [Concomitant]
  7. NEOSTIGMINE [Concomitant]
  8. ATRACURIUM [Concomitant]

REACTIONS (1)
  - HEPATIC NECROSIS [None]
